FAERS Safety Report 4389163-4 (Version None)
Quarter: 2004Q3

REPORT INFORMATION
  Report Type: 
  Country: None (occurrence: None)
  Receive Date: 20040702
  Receipt Date: 20040603
  Transmission Date: 20050211
  Serious: Yes (Hospitalization)
  Sender: FDA-Public Use
  Company Number: 200411925JP

PATIENT
  Age: 53 Year
  Sex: Female
  Weight: 43.75 kg

DRUGS (3)
  1. KETEK [Suspect]
     Indication: UPPER RESPIRATORY TRACT INFLAMMATION
     Route: 048
     Dates: start: 20040506, end: 20040510
  2. ASTHMA [Concomitant]
     Indication: UPPER RESPIRATORY TRACT INFLAMMATION
     Dosage: DOSE: 6 CAPSULE
     Route: 048
     Dates: start: 20040506, end: 20040521
  3. DASEN [Concomitant]
     Indication: UPPER RESPIRATORY TRACT INFLAMMATION
     Dosage: DOSE: 3 TABLETS
     Route: 048
     Dates: start: 20040506, end: 20040521

REACTIONS (7)
  - COUGH [None]
  - CRYPTOGENIC ORGANIZING PNEUMONIA [None]
  - EOSINOPHIL COUNT INCREASED [None]
  - EOSINOPHILIC PNEUMONIA CHRONIC [None]
  - LOEFFLER'S SYNDROME [None]
  - RED BLOOD CELL SEDIMENTATION RATE INCREASED [None]
  - WHITE BLOOD CELL COUNT INCREASED [None]
